FAERS Safety Report 23230295 (Version 1)
Quarter: 2023Q4

REPORT INFORMATION
  Report Type: Spontaneous
  Country: CN (occurrence: CN)
  Receive Date: 20231127
  Receipt Date: 20231127
  Transmission Date: 20240109
  Serious: Yes (Hospitalization, Other)
  Sender: FDA-Public Use
  Company Number: None

PATIENT
  Age: 64 Year
  Sex: Female
  Weight: 50 kg

DRUGS (6)
  1. CYCLOPHOSPHAMIDE [Suspect]
     Active Substance: CYCLOPHOSPHAMIDE
     Indication: Breast cancer female
     Dosage: 0.9 G, ONCE, DILUTED WITH 100 ML 0.9% SODIUM CHLORIDE, AS A PART OF THIRD CYCLE OF EC REGIMEN CHEMOT
     Route: 041
     Dates: start: 20231030, end: 20231030
  2. CYCLOPHOSPHAMIDE [Suspect]
     Active Substance: CYCLOPHOSPHAMIDE
     Indication: Hormone receptor positive breast cancer
  3. SODIUM CHLORIDE [Suspect]
     Active Substance: SODIUM CHLORIDE
     Indication: Medication dilution
     Dosage: (0.9%) 100 ML, ONCE USED TO DILUTE 0.9 G CYCLOPHOSPHAMIDE, AS A PART OF THIRD CYCLE OF EC REGIMEN CH
     Route: 041
     Dates: start: 20231030, end: 20231030
  4. SODIUM CHLORIDE [Suspect]
     Active Substance: SODIUM CHLORIDE
     Dosage: (0.9%) 100 ML, ONCE, USED TO DILUTE 140 MG PHARMORUBICIN, AS A PART OF THIRD CYCLE OF EC REGIMEN CHE
     Route: 041
     Dates: start: 20231030, end: 20231030
  5. EPIRUBICIN [Suspect]
     Active Substance: EPIRUBICIN
     Indication: Breast cancer female
     Dosage: 140 MG, ONCE, DILUTED IN 100 ML 0.9% SODIUM CHLORIDE, AS A PART OF THIRD CYCLE OF EC REGIMEN CHEMOTH
     Route: 041
     Dates: start: 20231030, end: 20231030
  6. EPIRUBICIN [Suspect]
     Active Substance: EPIRUBICIN
     Indication: Hormone receptor positive breast cancer

REACTIONS (7)
  - Myelosuppression [Recovering/Resolving]
  - White blood cell count decreased [Recovering/Resolving]
  - Neutrophil count decreased [Recovering/Resolving]
  - Lymphocyte count decreased [Recovering/Resolving]
  - Red blood cell count decreased [Recovering/Resolving]
  - Haemoglobin decreased [Recovering/Resolving]
  - Platelet count decreased [Recovering/Resolving]

NARRATIVE: CASE EVENT DATE: 20231103
